FAERS Safety Report 9272178 (Version 1)
Quarter: 2013Q2

REPORT INFORMATION
  Report Type: Spontaneous
  Country: FR (occurrence: FR)
  Receive Date: 20130506
  Receipt Date: 20130506
  Transmission Date: 20140414
  Serious: Yes (Hospitalization)
  Sender: FDA-Public Use
  Company Number: FR-BAYER-2013-055045

PATIENT
  Age: 83 Year
  Sex: Female

DRUGS (2)
  1. CIFLOX [Suspect]
     Indication: BRONCHITIS
     Dosage: UNK
     Route: 048
     Dates: start: 20120427, end: 20120430
  2. SIMVASTATINE [Suspect]
     Dosage: 40 MG, QD
     Route: 048
     Dates: end: 20120430

REACTIONS (2)
  - Rhabdomyolysis [Recovered/Resolved]
  - Blood creatine phosphokinase increased [Recovered/Resolved]
